FAERS Safety Report 5677081-0 (Version None)
Quarter: 2008Q1

REPORT INFORMATION
  Report Type: 
  Country: None (occurrence: None)
  Receive Date: 20080324
  Receipt Date: 20080313
  Transmission Date: 20080703
  Serious: Yes (Other)
  Sender: FDA-Public Use
  Company Number: FR-AVENTIS-200810976FR

PATIENT
  Age: 33 Year
  Sex: Female
  Weight: 77 kg

DRUGS (6)
  1. KETEK [Suspect]
     Route: 048
     Dates: start: 20041004, end: 20041004
  2. BECOTIDE [Concomitant]
     Indication: BRONCHOSPASM
     Route: 055
     Dates: start: 20041004
  3. VENTOLIN [Concomitant]
     Indication: BRONCHOSPASM
     Route: 055
     Dates: start: 20041004
  4. GELUPRANE [Concomitant]
     Route: 048
     Dates: start: 20041004
  5. GELUPRANE [Concomitant]
     Indication: PAIN
     Route: 048
     Dates: start: 20041004
  6. NASAL PREPARATIONS [Concomitant]
     Route: 045
     Dates: start: 20041004

REACTIONS (4)
  - FACE OEDEMA [None]
  - HALLUCINATION [None]
  - HYPERSENSITIVITY [None]
  - VOMITING [None]
